FAERS Safety Report 16897605 (Version 3)
Quarter: 2019Q4

REPORT INFORMATION
  Report Type: Spontaneous
  Country: JP (occurrence: JP)
  Receive Date: 20191009
  Receipt Date: 20191218
  Transmission Date: 20200122
  Serious: Yes (Hospitalization, Other)
  Sender: FDA-Public Use
  Company Number: JP-SA-2019SA076597

PATIENT
  Age: 53 Year
  Sex: Male
  Weight: 69 kg

DRUGS (12)
  1. FLUOROURACIL. [Suspect]
     Active Substance: FLUOROURACIL
     Indication: METASTASES TO LUNG
     Dosage: UNK
     Route: 065
  2. IRINOTECAN [Suspect]
     Active Substance: IRINOTECAN
     Indication: RECTAL CANCER
     Dosage: 240 MG, QOW
     Route: 041
     Dates: start: 20180925, end: 20181204
  3. ZALTRAP [Suspect]
     Active Substance: ZIV-AFLIBERCEPT
     Indication: RECTAL CANCER
     Dosage: 290 MG, QOW
     Route: 041
     Dates: start: 20180925, end: 20181204
  4. FLUOROURACIL. [Suspect]
     Active Substance: FLUOROURACIL
     Indication: RECTAL CANCER
     Dosage: 500 MG/TWICE, 4 TIMES/2 WEEKS
     Route: 041
     Dates: start: 20180925, end: 20181205
  5. FLUOROURACIL. [Suspect]
     Active Substance: FLUOROURACIL
     Indication: METASTASES TO LIVER
     Dosage: 1650 MG
     Route: 065
     Dates: start: 20180410, end: 20180912
  6. IRINOTECAN [Suspect]
     Active Substance: IRINOTECAN
     Indication: METASTASES TO LIVER
  7. LEVOFOLINATE CALCIUM [Concomitant]
     Active Substance: LEVOLEUCOVORIN CALCIUM
     Indication: METASTASES TO LIVER
     Dosage: UNK
     Route: 065
  8. IRINOTECAN [Suspect]
     Active Substance: IRINOTECAN
     Indication: METASTASES TO LUNG
  9. ZALTRAP [Suspect]
     Active Substance: ZIV-AFLIBERCEPT
     Indication: METASTASES TO LIVER
  10. ZALTRAP [Suspect]
     Active Substance: ZIV-AFLIBERCEPT
     Indication: METASTASES TO LUNG
  11. LEVOFOLINATE CALCIUM [Concomitant]
     Active Substance: LEVOLEUCOVORIN CALCIUM
     Indication: METASTASES TO LUNG
  12. LEVOFOLINATE CALCIUM [Concomitant]
     Active Substance: LEVOLEUCOVORIN CALCIUM
     Indication: RECTAL CANCER
     Dosage: 350 MG, QOW
     Route: 041
     Dates: start: 20180925, end: 20181204

REACTIONS (6)
  - Haemorrhoids [Recovering/Resolving]
  - Decreased appetite [Recovered/Resolved]
  - Intestinal congestion [Recovering/Resolving]
  - Condition aggravated [Recovered/Resolved with Sequelae]
  - Tumour thrombosis [Recovered/Resolved with Sequelae]
  - Ascites [Unknown]

NARRATIVE: CASE EVENT DATE: 20181107
